FAERS Safety Report 13531887 (Version 3)
Quarter: 2017Q2

REPORT INFORMATION
  Report Type: Spontaneous
  Country: BR (occurrence: BR)
  Receive Date: 20170510
  Receipt Date: 20170620
  Transmission Date: 20170830
  Serious: Yes (Other)
  Sender: FDA-Public Use
  Company Number: BR-ELI_LILLY_AND_COMPANY-BR201705001028

PATIENT
  Age: 78 Year
  Sex: Female

DRUGS (1)
  1. FORTEO [Suspect]
     Active Substance: TERIPARATIDE
     Indication: PRODUCT USED FOR UNKNOWN INDICATION
     Dosage: UNK UNK, UNKNOWN
     Route: 065
     Dates: start: 201601

REACTIONS (19)
  - Wrist fracture [Unknown]
  - Hand fracture [Unknown]
  - Thrombosis [Unknown]
  - Hip fracture [Unknown]
  - Femur fracture [Unknown]
  - Nervous system disorder [Unknown]
  - Lower limb fracture [Unknown]
  - Upper limb fracture [Unknown]
  - Cervical vertebral fracture [Unknown]
  - Clavicle fracture [Unknown]
  - Upper limb fracture [Unknown]
  - Pubis fracture [Unknown]
  - Fall [Unknown]
  - Calcium deficiency [Unknown]
  - Fall [Unknown]
  - Foot fracture [Unknown]
  - Skull fracture [Unknown]
  - Hypothyroidism [Unknown]
  - Head injury [Unknown]

NARRATIVE: CASE EVENT DATE: 201607
